FAERS Safety Report 9585863 (Version 1)
Quarter: 2013Q4

REPORT INFORMATION
  Report Type: Spontaneous
  Country: US (occurrence: None)
  Receive Date: 20131002
  Receipt Date: 20131002
  Transmission Date: 20140711
  Serious: No
  Sender: FDA-Public Use
  Company Number: None

PATIENT
  Age: 30 Year
  Sex: Female
  Weight: 90.72 kg

DRUGS (1)
  1. AMPHETAMINE SALT ER [Suspect]
     Indication: ATTENTION DEFICIT/HYPERACTIVITY DISORDER
     Dosage: 1 TABLET, QD, ORAL
     Route: 048
     Dates: start: 20130729, end: 20130815

REACTIONS (6)
  - Nausea [None]
  - Thirst [None]
  - Drug ineffective [None]
  - Road traffic accident [None]
  - Therapeutic response unexpected with drug substitution [None]
  - Product substitution issue [None]
